FAERS Safety Report 21856395 (Version 1)
Quarter: 2023Q1

REPORT INFORMATION
  Report Type: Other
  Country: AU (occurrence: AU)
  Receive Date: 20230112
  Receipt Date: 20230112
  Transmission Date: 20230418
  Serious: Yes (Other)
  Sender: FDA-Public Use
  Company Number: AU-CELLTRION INC.-2023AU000123

PATIENT

DRUGS (1)
  1. RITUXIMAB [Suspect]
     Active Substance: RITUXIMAB
     Indication: Product used for unknown indication

REACTIONS (5)
  - Blindness unilateral [Unknown]
  - Myelitis [Unknown]
  - Asthenia [Unknown]
  - Drug hypersensitivity [Unknown]
  - Product use in unapproved indication [Unknown]
